FAERS Safety Report 18536925 (Version 20)
Quarter: 2021Q3

REPORT INFORMATION
  Report Type: Report from Study
  Country: CA (occurrence: CA)
  Receive Date: 20201124
  Receipt Date: 20210927
  Transmission Date: 20211014
  Serious: Yes (Hospitalization)
  Sender: FDA-Public Use
  Company Number: CA-BIOGEN-2020BI00947803

PATIENT
  Age: 51 Year
  Sex: Male

DRUGS (7)
  1. TYSABRI [Suspect]
     Active Substance: NATALIZUMAB
     Indication: RELAPSING-REMITTING MULTIPLE SCLEROSIS
     Dosage: INFUSED OVER ONE HOUR
     Route: 042
     Dates: start: 20120829, end: 20180913
  2. TYSABRI [Suspect]
     Active Substance: NATALIZUMAB
     Dosage: INFUSED OVER ONE HOUR
     Route: 042
     Dates: start: 20120829
  3. TYSABRI [Suspect]
     Active Substance: NATALIZUMAB
     Route: 042
     Dates: start: 20181017
  4. TYSABRI [Suspect]
     Active Substance: NATALIZUMAB
     Dosage: 300MG INTRAVENOUS, INFUSED OVER ONE HOUR EVERY 4 WEEKS
     Route: 042
     Dates: start: 20120829, end: 20180913
  5. TYSABRI [Suspect]
     Active Substance: NATALIZUMAB
     Dosage: INFUSED OVER ONE HOUR
     Route: 042
     Dates: start: 20120829
  6. TYSABRI [Suspect]
     Active Substance: NATALIZUMAB
     Dosage: 300MG INTRAVENOUS, INFUSED OVER ONE HOUR EVERY 5 WEEKS
     Route: 042
     Dates: start: 20181017
  7. TYSABRI [Suspect]
     Active Substance: NATALIZUMAB
     Dosage: INFUSED OVER ONE HOUR
     Route: 042
     Dates: start: 20181017

REACTIONS (4)
  - Nephrolithiasis [Unknown]
  - Prescribed underdose [Not Recovered/Not Resolved]
  - Pulmonary embolism [Unknown]
  - Urinary tract infection [Recovered/Resolved]

NARRATIVE: CASE EVENT DATE: 20200917
